FAERS Safety Report 10430284 (Version 1)
Quarter: 2014Q3

REPORT INFORMATION
  Report Type: Spontaneous
  Country: JP (occurrence: JP)
  Receive Date: 20140904
  Receipt Date: 20140904
  Transmission Date: 20150326
  Serious: Yes (Death)
  Sender: FDA-Public Use
  Company Number: JP-MALLINCKRODT-T201403318

PATIENT
  Age: 71 Year
  Sex: Male
  Weight: 45 kg

DRUGS (9)
  1. MORPHINE HYDROCHLORIDE [Concomitant]
     Active Substance: MORPHINE HYDROCHLORIDE
     Dosage: 100 MG
     Route: 051
     Dates: start: 20140517, end: 20140526
  2. LOXOPROFEN SODIUM [Concomitant]
     Active Substance: LOXOPROFEN SODIUM
     Dosage: 180 MG
     Route: 048
     Dates: end: 20140516
  3. METHADONE [Suspect]
     Active Substance: METHADONE HYDROCHLORIDE
     Indication: CANCER PAIN
     Dosage: 5 MG, (15 MG DAILY DOSE)
     Route: 048
     Dates: start: 20140519, end: 20140525
  4. DECADRON [Concomitant]
     Active Substance: DEXAMETHASONE
     Dosage: 2 MG
     Route: 048
     Dates: end: 20140516
  5. LYRICA [Concomitant]
     Active Substance: PREGABALIN
     Dosage: 300 MG
     Route: 048
     Dates: end: 20140528
  6. MAGMITT [Concomitant]
     Active Substance: MAGNESIUM OXIDE
     Dosage: 1500 MG
     Route: 048
     Dates: end: 20140529
  7. METHADONE [Suspect]
     Active Substance: METHADONE HYDROCHLORIDE
     Dosage: 10 MG, (30 MG DAILY DOSE)
     Route: 048
     Dates: start: 20140526, end: 20140530
  8. MORPHINE HYDROCHLORIDE [Concomitant]
     Active Substance: MORPHINE HYDROCHLORIDE
     Dosage: 2-5 MG, PRN
     Route: 051
     Dates: start: 20130518
  9. HYDANTOL [Concomitant]
     Active Substance: PHENYTOIN SODIUM
     Dosage: 300 MG
     Route: 048
     Dates: end: 20140529

REACTIONS (1)
  - Pleural mesothelioma [Fatal]

NARRATIVE: CASE EVENT DATE: 20140530
